FAERS Safety Report 10028446 (Version 1)
Quarter: 2014Q1

REPORT INFORMATION
  Report Type: Spontaneous
  Country: US (occurrence: None)
  Receive Date: 20140320
  Receipt Date: 20140320
  Transmission Date: 20141002
  Serious: Yes (Hospitalization)
  Sender: FDA-Public Use
  Company Number: 2239258

PATIENT
  Sex: Female

DRUGS (4)
  1. EPINEPHRINE [Suspect]
     Indication: ALLERGY TO ARTHROPOD STING
  2. EPINEPHRINE [Suspect]
  3. ANTIHISTAMINES [Concomitant]
  4. CORTICOSTEROIDS [Concomitant]

REACTIONS (3)
  - Incorrect route of drug administration [None]
  - Tachycardia [None]
  - Paralysis [None]
